FAERS Safety Report 10014414 (Version 3)
Quarter: 2014Q2

REPORT INFORMATION
  Report Type: Spontaneous
  Country: ES (occurrence: ES)
  Receive Date: 20140317
  Receipt Date: 20140417
  Transmission Date: 20141212
  Serious: Yes (Other)
  Sender: FDA-Public Use
  Company Number: ES-AMGEN-ESPSP2014017740

PATIENT
  Age: 78 Year
  Sex: Female
  Weight: 40 kg

DRUGS (2)
  1. PROLIA [Suspect]
     Indication: OSTEOPOROSIS
     Dosage: UNK
     Route: 065
     Dates: start: 20140205
  2. GINKGO BILOBA [Concomitant]

REACTIONS (14)
  - Urinary tract infection [Recovering/Resolving]
  - Vaginal haemorrhage [Recovered/Resolved]
  - Device failure [Unknown]
  - Blood test abnormal [Unknown]
  - Urine analysis abnormal [Unknown]
  - Muscle spasms [Recovering/Resolving]
  - Gingival pain [Unknown]
  - Nasopharyngitis [Unknown]
  - Fluid retention [Unknown]
  - Oral herpes [Unknown]
  - Dermal cyst [Recovered/Resolved]
  - Weight increased [Unknown]
  - Fatigue [Unknown]
  - Pain in extremity [Recovering/Resolving]
